FAERS Safety Report 7717739-2 (Version None)
Quarter: 2011Q3

REPORT INFORMATION
  Report Type: 
  Country: None (occurrence: None)
  Receive Date: 20110830
  Receipt Date: 20110816
  Transmission Date: 20111222
  Serious: Yes (Death)
  Sender: FDA-Public Use
  Company Number: FR-ASTRAZENECA-2011SE46513

PATIENT
  Age: 0 Week
  Sex: Male
  Weight: 3.3 kg

DRUGS (3)
  1. SPASFON [Concomitant]
     Route: 064
  2. OMEPRAZOLE [Suspect]
     Route: 064
     Dates: start: 20110326, end: 20110502
  3. TRIPHASIL-21 [Concomitant]
     Route: 064

REACTIONS (1)
  - STILLBIRTH [None]
